FAERS Safety Report 9322069 (Version 3)
Quarter: 2013Q2

REPORT INFORMATION
  Report Type: Spontaneous
  Country: US (occurrence: US)
  Receive Date: 20130531
  Receipt Date: 20130614
  Transmission Date: 20140414
  Serious: Yes (Hospitalization)
  Sender: FDA-Public Use
  Company Number: US-JNJFOC-20130516122

PATIENT
  Age: 33 Year
  Sex: Female
  Weight: 108.86 kg

DRUGS (1)
  1. LISTERINE ADV MOUTHWASH TARTAR PROTECTION [Suspect]
     Indication: TOOTH DEPOSIT
     Dosage: CAP FULL
     Route: 048
     Dates: start: 20130511, end: 20130512

REACTIONS (7)
  - Anaphylactic shock [Recovered/Resolved]
  - Oral infection [Recovered/Resolved]
  - Drug hypersensitivity [Recovered/Resolved]
  - Oral discomfort [Recovered/Resolved]
  - Drug ineffective [Unknown]
  - Tongue disorder [Recovered/Resolved]
  - Inappropriate schedule of drug administration [Unknown]
